FAERS Safety Report 4668310-0 (Version None)
Quarter: 2005Q2

REPORT INFORMATION
  Report Type: 
  Country: None (occurrence: None)
  Receive Date: 20050519
  Receipt Date: 20050512
  Transmission Date: 20051028
  Serious: Yes (Hospitalization)
  Sender: FDA-Public Use
  Company Number: 2005073913

PATIENT
  Age: 54 Year
  Sex: Female
  Weight: 86.1834 kg

DRUGS (6)
  1. LIPITOR [Suspect]
     Indication: BLOOD CHOLESTEROL
     Dosage: 1 IN 1 D, ORAL
     Route: 048
     Dates: end: 20041223
  2. PREDNISONE TAB [Suspect]
     Indication: MYALGIA
  3. ACETYLSALICYLIC ACID SRT [Concomitant]
  4. ATENOLOL [Concomitant]
  5. POTASSIUM ACETATE [Concomitant]
  6. OSCAL (CALCIUM CARBONATE) [Concomitant]

REACTIONS (5)
  - BLOOD CREATINE PHOSPHOKINASE INCREASED [None]
  - BLOOD GLUCOSE DECREASED [None]
  - BLOOD PRESSURE ABNORMAL [None]
  - CHEST WALL PAIN [None]
  - MYALGIA [None]
